FAERS Safety Report 7723656-4 (Version None)
Quarter: 2011Q3

REPORT INFORMATION
  Report Type: 
  Country: None (occurrence: None)
  Receive Date: 20110901
  Receipt Date: 20110830
  Transmission Date: 20111222
  Serious: Yes (Hospitalization)
  Sender: FDA-Public Use
  Company Number: JP-ABBOTT-11P-087-0703637-00

PATIENT
  Sex: Female
  Weight: 43 kg

DRUGS (9)
  1. FERROUS CITRATE [Concomitant]
     Indication: ANAEMIA PROPHYLAXIS
     Dates: end: 20110203
  2. MESALAMINE [Concomitant]
     Indication: CROHN'S DISEASE
     Route: 048
     Dates: end: 20110203
  3. MESALAMINE [Concomitant]
     Route: 048
  4. AZATHIOPRINE [Concomitant]
     Indication: CROHN'S DISEASE
     Route: 048
     Dates: end: 20110203
  5. HUMIRA [Suspect]
     Indication: CROHN'S DISEASE
     Route: 058
     Dates: start: 20110117, end: 20110117
  6. HUMIRA [Suspect]
     Route: 058
     Dates: start: 20110131, end: 20110131
  7. HUMIRA [Suspect]
     Route: 058
     Dates: end: 20110131
  8. AZATHIOPRINE [Concomitant]
     Route: 048
  9. LACTOBACILLUS CASEI [Concomitant]
     Indication: PROPHYLAXIS
     Dates: end: 20110203

REACTIONS (5)
  - PANCREATITIS ACUTE [None]
  - ABDOMINAL PAIN [None]
  - VOMITING [None]
  - PYREXIA [None]
  - SUBILEUS [None]
